FAERS Safety Report 9511139 (Version 2)
Quarter: 2013Q3

REPORT INFORMATION
  Report Type: Spontaneous
  Country: US (occurrence: US)
  Receive Date: 20130910
  Receipt Date: 20130924
  Transmission Date: 20140515
  Serious: Yes (Death, Hospitalization, Other)
  Sender: FDA-Public Use
  Company Number: US-009507513-1309USA003846

PATIENT
  Age: 76 Year
  Sex: Female

DRUGS (3)
  1. FOSAMAX [Suspect]
     Indication: OSTEOPOROSIS
     Dosage: 70 MG, ONCE WEEKLY
     Route: 048
     Dates: start: 1994, end: 201209
  2. JAKAFI [Concomitant]
  3. ZOCOR [Concomitant]

REACTIONS (3)
  - Death [Fatal]
  - Femur fracture [Recovering/Resolving]
  - Pain in extremity [Recovering/Resolving]
